FAERS Safety Report 9147266 (Version 1)
Quarter: 2013Q1

REPORT INFORMATION
  Report Type: Spontaneous
  Country: DE (occurrence: None)
  Receive Date: 20130213
  Receipt Date: 20130213
  Transmission Date: 20140127
  Serious: Yes (Death, Hospitalization)
  Sender: FDA-Public Use
  Company Number: DER/GER/13/0027843

PATIENT
  Age: 79 Year
  Sex: Female
  Weight: 74 kg

DRUGS (5)
  1. METFORMIN (METFORMIN) [Suspect]
     Indication: PRODUCT USED FOR UNKNOWN INDICATION
     Route: 048
  2. NOVORAPID (INSULIN ASPART) [Concomitant]
  3. LEVEMIR (INSULIN DETEMIR) [Concomitant]
  4. ASS 100 (ACETYLSALICYLIC ACID) [Concomitant]
  5. L-THYROXIN 50 (LEVOTHYROXINE SODIUM) [Concomitant]

REACTIONS (5)
  - Cardiac arrest [None]
  - Lactic acidosis [None]
  - Renal failure acute [None]
  - Renal transplant [None]
  - Hypoglycaemia [None]
